FAERS Safety Report 19360173 (Version 1)
Quarter: 2021Q2

REPORT INFORMATION
  Report Type: Spontaneous
  Country: US (occurrence: US)
  Receive Date: 20210601
  Receipt Date: 20210601
  Transmission Date: 20210717
  Serious: No
  Sender: FDA-Public Use
  Company Number: US-PFIZER INC-2021253723

PATIENT
  Age: 65 Year
  Sex: Female
  Weight: 88.9 kg

DRUGS (3)
  1. ESTRACE [Suspect]
     Active Substance: ESTRADIOL
     Indication: VULVOVAGINAL DRYNESS
     Dosage: UNK, AS NEEDED (INSERTED VAGINALLY AS NEEDED)
     Route: 067
  2. PREMARIN [Suspect]
     Active Substance: ESTROGENS, CONJUGATED
     Indication: VULVOVAGINAL DRYNESS
     Dosage: UNK, AS NEEDED (INSERT VAGINALLY AS NEEDED)
     Route: 067
  3. ESTRING [Suspect]
     Active Substance: ESTRADIOL
     Indication: VULVOVAGINAL DRYNESS
     Dosage: 1 DF, EVERY 3 MONTHS (1 RING EVERY 3 MONTHS INSERTED VAGINALLY)
     Route: 067

REACTIONS (3)
  - Vulvovaginal pain [Not Recovered/Not Resolved]
  - Off label use [Unknown]
  - Vulvovaginal discomfort [Unknown]
